FAERS Safety Report 12604414 (Version 1)
Quarter: 2016Q3

REPORT INFORMATION
  Report Type: Spontaneous
  Country: US (occurrence: US)
  Receive Date: 20160728
  Receipt Date: 20160728
  Transmission Date: 20161109
  Serious: No
  Sender: FDA-Public Use
  Company Number: US-GLAXOSMITHKLINE-US2016106891

PATIENT
  Sex: Female

DRUGS (6)
  1. FLONASE [Suspect]
     Active Substance: FLUTICASONE PROPIONATE
     Indication: EAR INFECTION
     Dosage: UNK
     Dates: start: 201607
  2. KEFLEX [Suspect]
     Active Substance: CEPHALEXIN
     Indication: MIDDLE EAR EFFUSION
  3. AMOXIL [Suspect]
     Active Substance: AMOXICILLIN
     Indication: EAR INFECTION
     Dosage: UNK
     Dates: start: 201607
  4. FLONASE [Suspect]
     Active Substance: FLUTICASONE PROPIONATE
     Indication: MIDDLE EAR EFFUSION
  5. AMOXIL [Suspect]
     Active Substance: AMOXICILLIN
     Indication: MIDDLE EAR EFFUSION
  6. KEFLEX [Suspect]
     Active Substance: CEPHALEXIN
     Indication: EAR INFECTION
     Dosage: UNK
     Dates: start: 201607

REACTIONS (3)
  - Drug ineffective [Unknown]
  - Exposure during pregnancy [Unknown]
  - Intentional product misuse [Unknown]

NARRATIVE: CASE EVENT DATE: 201607
